FAERS Safety Report 11945039 (Version 1)
Quarter: 2016Q1

REPORT INFORMATION
  Report Type: Report from Study
  Country: FR (occurrence: FR)
  Receive Date: 20160125
  Receipt Date: 20160125
  Transmission Date: 20160526
  Serious: Yes (Life-Threatening, Hospitalization, Other)
  Sender: FDA-Public Use
  Company Number: FR-BRISTOL-MYERS SQUIBB COMPANY-21340674

PATIENT
  Age: 59 Year
  Sex: Male
  Weight: 75 kg

DRUGS (11)
  1. DUPHALAC [Concomitant]
     Active Substance: LACTULOSE
     Indication: ENCEPHALOPATHY
     Route: 065
  2. LASILIX                            /00032601/ [Concomitant]
     Active Substance: FUROSEMIDE
     Indication: PRODUCT USED FOR UNKNOWN INDICATION
     Dosage: 40 MG, QD
     Route: 065
  3. INEXIUM [Concomitant]
     Active Substance: ESOMEPRAZOLE
     Indication: ABDOMINAL PAIN UPPER
     Dosage: 40 MG, QD
     Route: 065
  4. AVLOCARDYL [Concomitant]
     Active Substance: PROPRANOLOL HYDROCHLORIDE
     Indication: VARICES OESOPHAGEAL
     Dosage: 40 MG, BID
     Route: 065
  5. MODAMIDE [Concomitant]
     Active Substance: AMILORIDE HYDROCHLORIDE
     Indication: PRODUCT USED FOR UNKNOWN INDICATION
     Dosage: 5 MG, QD
     Route: 065
  6. DACLATASVIR DIHYDROCHLORIDE [Suspect]
     Active Substance: DACLATASVIR DIHYDROCHLORIDE
     Indication: HEPATITIS C
     Dosage: 60 MG, QD
     Route: 048
     Dates: start: 20140701, end: 20141120
  7. ALDACTONE [Concomitant]
     Active Substance: SPIRONOLACTONE
     Indication: ASCITES
     Dosage: 50 MG, QD
     Route: 065
     Dates: start: 20140501
  8. NOROXINE [Concomitant]
     Active Substance: NORFLOXACIN
     Indication: PRODUCT USED FOR UNKNOWN INDICATION
     Dosage: 400 MG, QD
     Route: 065
  9. SOFOSBUVIR [Suspect]
     Active Substance: SOFOSBUVIR
     Indication: HEPATITIS C
     Dosage: 400 MG, QD
     Route: 048
     Dates: start: 20140701, end: 20141120
  10. DIFFU-K [Concomitant]
     Active Substance: POTASSIUM CHLORIDE
     Indication: HYPOKALAEMIA
     Dosage: 6 DF, QD
     Route: 065
  11. KARDEGIC [Concomitant]
     Active Substance: ASPIRIN LYSINE
     Indication: MITRAL VALVE REPLACEMENT
     Dosage: 75 MG, QD
     Route: 065

REACTIONS (8)
  - Endocarditis [Not Recovered/Not Resolved]
  - Hepatic encephalopathy [Recovered/Resolved]
  - Asterixis [Unknown]
  - Headache [Unknown]
  - Asthenia [Unknown]
  - Hemiparesis [Not Recovered/Not Resolved]
  - Cardiac failure [Not Recovered/Not Resolved]
  - Septic embolus [Not Recovered/Not Resolved]

NARRATIVE: CASE EVENT DATE: 20140702
